FAERS Safety Report 8474489 (Version 2)
Quarter: 2013Q4

REPORT INFORMATION
  Report Type: Spontaneous
  Country: US (occurrence: US)
  Receive Date: 20120323
  Receipt Date: 20131108
  Transmission Date: 20140711
  Serious: Yes (Other)
  Sender: FDA-Public Use
  Company Number: US-JNJFOC-20120308792

PATIENT
  Sex: Female
  Weight: 130.18 kg

DRUGS (16)
  1. UNSPECIFIED FENTANYL PATCH [Suspect]
     Indication: OSTEOARTHRITIS
     Route: 062
     Dates: start: 2011, end: 201202
  2. UNSPECIFIED FENTANYL PATCH [Suspect]
     Indication: LYME DISEASE
     Route: 062
     Dates: start: 2011, end: 201202
  3. UNSPECIFIED FENTANYL PATCH [Suspect]
     Indication: FIBROMYALGIA
     Route: 062
     Dates: start: 2011, end: 201202
  4. DURAGESIC [Suspect]
     Indication: OSTEOARTHRITIS
     Route: 062
     Dates: start: 20120301
  5. DURAGESIC [Suspect]
     Indication: LYME DISEASE
     Route: 062
     Dates: start: 20120301
  6. DURAGESIC [Suspect]
     Indication: FIBROMYALGIA
     Route: 062
     Dates: start: 20120301
  7. MARINOL [Concomitant]
     Indication: PAIN
     Route: 048
     Dates: start: 201201
  8. TRAZODONE [Concomitant]
     Indication: MUSCLE DISORDER
     Route: 048
     Dates: start: 201201
  9. TRAZODONE [Concomitant]
     Indication: SLEEP DISORDER
     Route: 048
     Dates: start: 201201
  10. LAMICTAL [Concomitant]
     Indication: CONVULSION
     Route: 048
     Dates: start: 201201
  11. LAMICTAL [Concomitant]
     Indication: PAIN
     Route: 048
     Dates: start: 201201
  12. PROMETHAZINE [Concomitant]
     Indication: NAUSEA
     Dosage: UPTO 3 TIMES DAILY AS NECESSARY
     Route: 048
     Dates: start: 2011
  13. RANITIDINE [Concomitant]
     Indication: HYPERCHLORHYDRIA
     Dosage: ONCE OR TWICE DAILY
     Route: 048
     Dates: start: 2011
  14. TRILEPTAL [Concomitant]
     Indication: CONVULSION
     Route: 048
     Dates: start: 201201
  15. TRILEPTAL [Concomitant]
     Indication: PAIN
     Route: 048
     Dates: start: 201201
  16. KLONOPIN [Concomitant]
     Indication: SLEEP DISORDER
     Route: 048
     Dates: start: 201201

REACTIONS (17)
  - Weight increased [Recovered/Resolved]
  - Osteoarthritis [Not Recovered/Not Resolved]
  - Hypovitaminosis [Unknown]
  - Protein total decreased [Unknown]
  - Hepatic enzyme increased [Unknown]
  - Dyspnoea [Recovered/Resolved]
  - Body height decreased [Not Recovered/Not Resolved]
  - Fluid intake reduced [Recovered/Resolved]
  - Wrong technique in drug usage process [Recovered/Resolved]
  - Dermatitis contact [Recovered/Resolved]
  - Nausea [Recovered/Resolved]
  - Vomiting [Recovered/Resolved]
  - Asthenia [Recovered/Resolved]
  - Dizziness [Recovered/Resolved]
  - Fall [Recovered/Resolved]
  - Product quality issue [Not Recovered/Not Resolved]
  - Wrong technique in drug usage process [Not Recovered/Not Resolved]
